FAERS Safety Report 14198257 (Version 1)
Quarter: 2017Q4

REPORT INFORMATION
  Report Type: Spontaneous
  Country: US (occurrence: US)
  Receive Date: 20171116
  Receipt Date: 20171116
  Transmission Date: 20180321
  Serious: Yes (Life-Threatening, Hospitalization, Disabling, Other)
  Sender: FDA-Public Use
  Company Number: None

PATIENT
  Age: 33 Year
  Sex: Male
  Weight: 82.8 kg

DRUGS (4)
  1. ABILIFY [Suspect]
     Active Substance: ARIPIPRAZOLE
  2. MIRTAZAPINE. [Suspect]
     Active Substance: MIRTAZAPINE
     Indication: DEPRESSION
  3. MIRTAZAPINE. [Suspect]
     Active Substance: MIRTAZAPINE
     Indication: INSOMNIA
  4. MIRTAZAPINE. [Suspect]
     Active Substance: MIRTAZAPINE
     Indication: MOOD SWINGS

REACTIONS (24)
  - Mood swings [None]
  - Tachyphrenia [None]
  - Dyspnoea [None]
  - Cough [None]
  - Discomfort [None]
  - Insomnia [None]
  - Weight decreased [None]
  - Erectile dysfunction [None]
  - Amnesia [None]
  - Disturbance in attention [None]
  - Burning sensation [None]
  - Skin discolouration [None]
  - Pain [None]
  - Dehydration [None]
  - Fatigue [None]
  - Asthenia [None]
  - Hypotonia [None]
  - Thirst [None]
  - Weight increased [None]
  - Chest discomfort [None]
  - Dry skin [None]
  - Abdominal distension [None]
  - Hypertension [None]
  - Pollakiuria [None]

NARRATIVE: CASE EVENT DATE: 20160128
